FAERS Safety Report 5101675-4 (Version None)
Quarter: 2006Q3

REPORT INFORMATION
  Report Type: 
  Country: None (occurrence: None)
  Receive Date: 20060731
  Receipt Date: 20060601
  Transmission Date: 20061208
  Serious: No
  Sender: FDA-Public Use
  Company Number: 2006PV014819

PATIENT
  Age: 48 Year
  Sex: Female
  Weight: 77.1115 kg

DRUGS (5)
  1. BYETTA [Suspect]
     Indication: DIABETES MELLITUS NON-INSULIN-DEPENDENT
     Dosage: 5 MCG;BID;SC
     Route: 058
     Dates: start: 20060529
  2. ACTOS [Concomitant]
  3. FORTAMET [Concomitant]
  4. NASACORT [Concomitant]
  5. SINGULAIR [Concomitant]

REACTIONS (3)
  - BLOOD GLUCOSE DECREASED [None]
  - FATIGUE [None]
  - HYPERSOMNIA [None]
